FAERS Safety Report 8882619 (Version 1)
Quarter: 2012Q4

REPORT INFORMATION
  Report Type: 
  Country: CA (occurrence: CA)
  Receive Date: 20121104
  Receipt Date: 20121104
  Transmission Date: 20130627
  Serious: Yes (Hospitalization)
  Sender: FDA-Public Use
  Company Number: PHMT2006CA00482

PATIENT
  Age: 39 Year
  Sex: Female

DRUGS (1)
  1. SANDOSTATIN LAR [Suspect]
     Indication: ACROMEGALY
     Dosage: 30 mg, every 4 weeks
     Dates: start: 2004

REACTIONS (8)
  - Gastrointestinal inflammation [Unknown]
  - Mood swings [Unknown]
  - Growth accelerated [Unknown]
  - Oedema peripheral [Unknown]
  - Arthralgia [Unknown]
  - Headache [Unknown]
  - Abdominal discomfort [Unknown]
  - Drug effect decreased [Not Recovered/Not Resolved]
